FAERS Safety Report 4802335-7 (Version None)
Quarter: 2005Q4

REPORT INFORMATION
  Report Type: 
  Country: None (occurrence: None)
  Receive Date: 20051018
  Receipt Date: 20050825
  Transmission Date: 20060501
  Serious: Yes (Hospitalization)
  Sender: FDA-Public Use
  Company Number: DE-AMGEN-UK148018

PATIENT
  Sex: Male

DRUGS (2)
  1. NEULASTA [Suspect]
     Indication: AGRANULOCYTOSIS
     Route: 058
     Dates: start: 20050819, end: 20050824
  2. ARANESP [Concomitant]
     Indication: MYELODYSPLASTIC SYNDROME
     Route: 058
     Dates: start: 20050201

REACTIONS (2)
  - BONE PAIN [None]
  - LEUKOCYTOSIS [None]
